FAERS Safety Report 8091656-3 (Version None)
Quarter: 2012Q1

REPORT INFORMATION
  Report Type: 
  Country: None (occurrence: None)
  Receive Date: 20120129
  Receipt Date: 20110920
  Transmission Date: 20120608
  Serious: No
  Sender: FDA-Public Use
  Company Number: US-ABBOTT-11P-163-0856704-00

PATIENT
  Sex: Male
  Weight: 90.8 kg

DRUGS (1)
  1. HUMIRA [Suspect]
     Indication: PSORIASIS
     Dates: start: 20110101

REACTIONS (6)
  - CHILLS [None]
  - PYREXIA [None]
  - CHROMATURIA [None]
  - INFLUENZA LIKE ILLNESS [None]
  - EYE SWELLING [None]
  - RASH MACULAR [None]
